FAERS Safety Report 7401049-7 (Version None)
Quarter: 2011Q2

REPORT INFORMATION
  Report Type: 
  Country: None (occurrence: None)
  Receive Date: 20110407
  Receipt Date: 20110330
  Transmission Date: 20111010
  Serious: Yes (Death, Hospitalization)
  Sender: FDA-Public Use
  Company Number: BR-GENZYME-CLOF-1001493

PATIENT
  Sex: Male
  Weight: 15 kg

DRUGS (11)
  1. CLOLAR [Suspect]
     Indication: ACUTE LYMPHOCYTIC LEUKAEMIA
     Dosage: 25 MG, QDX5
     Route: 042
     Dates: start: 20110224, end: 20110228
  2. CEFEPIME [Concomitant]
     Indication: NEUTROPENIA
  3. ITRACONAZOLE [Concomitant]
     Indication: PROPHYLAXIS
     Dosage: 50 MG, QD
     Route: 048
     Dates: start: 20110301, end: 20110301
  4. VANCOMYCIN [Concomitant]
     Indication: PYREXIA
     Dosage: 150 MG, UNK
     Route: 065
     Dates: start: 20110307, end: 20110314
  5. CYCLOPHOSPHAMIDE [Suspect]
     Indication: ACUTE LYMPHOCYTIC LEUKAEMIA
     Dosage: 250 MG, QDX5
     Route: 042
     Dates: start: 20110224, end: 20110228
  6. AMIKACIN [Concomitant]
     Indication: NEUTROPENIA
  7. ETOPOSIDE [Suspect]
     Indication: ACUTE LYMPHOCYTIC LEUKAEMIA
     Dosage: 100 MG, QDX5
     Route: 042
     Dates: start: 20110224, end: 20110228
  8. AMIKACIN [Concomitant]
     Indication: PYREXIA
     Dosage: UNK
     Dates: start: 20110301, end: 20110314
  9. FEBRAX [Concomitant]
     Indication: PROPHYLAXIS
     Dosage: 5 ML, UNK
     Route: 065
     Dates: start: 20110301, end: 20110314
  10. CEFEPIME [Concomitant]
     Indication: PYREXIA
     Dosage: 750 MG, UNK
     Route: 042
     Dates: start: 20110301, end: 20110314
  11. FILGRASTIM [Concomitant]
     Indication: BONE MARROW FAILURE
     Dosage: 300 MCG, QD
     Route: 065
     Dates: start: 20110301, end: 20110314

REACTIONS (5)
  - OLIGURIA [None]
  - RESPIRATORY TRACT HAEMORRHAGE [None]
  - THROMBOCYTOPENIA [None]
  - GASTROINTESTINAL HAEMORRHAGE [None]
  - MULTI-ORGAN FAILURE [None]
